FAERS Safety Report 23042693 (Version 1)
Quarter: 2023Q4

REPORT INFORMATION
  Report Type: Report from Study
  Country: CA (occurrence: CA)
  Receive Date: 20231009
  Receipt Date: 20231009
  Transmission Date: 20240110
  Serious: Yes (Other)
  Sender: FDA-Public Use
  Company Number: CA-AMGEN-CANSL2023175321

PATIENT
  Age: 27 Year
  Sex: Female

DRUGS (1)
  1. AVSOLA [Suspect]
     Active Substance: INFLIXIMAB-AXXQ
     Indication: Rheumatoid arthritis
     Dosage: 4 MILLIGRAM/KILOGRAM
     Route: 065

REACTIONS (2)
  - Anal abscess [Unknown]
  - Off label use [Unknown]

NARRATIVE: CASE EVENT DATE: 20230901
